FAERS Safety Report 5941566-X (Version None)
Quarter: 2008Q4

REPORT INFORMATION
  Report Type: 
  Country: None (occurrence: None)
  Receive Date: 20081104
  Receipt Date: 20081104
  Transmission Date: 20090506
  Serious: Yes (Life-Threatening, Other)
  Sender: FDA-Public Use
  Company Number: None

PATIENT
  Age: 74 Year
  Sex: Male
  Weight: 103.4201 kg

DRUGS (1)
  1. LUNESTA [Suspect]
     Indication: INSOMNIA
     Dosage: 1 TABLET AT BED TIME AS NEEDED
     Dates: start: 20081017, end: 20081018

REACTIONS (9)
  - ACNE [None]
  - AMNESIA [None]
  - DIARRHOEA [None]
  - ERYTHEMA [None]
  - GAIT DISTURBANCE [None]
  - MENTAL DISORDER [None]
  - SKIN EXFOLIATION [None]
  - URINARY INCONTINENCE [None]
  - URTICARIA [None]
